FAERS Safety Report 7300983-6 (Version None)
Quarter: 2011Q1

REPORT INFORMATION
  Report Type: 
  Country: None (occurrence: None)
  Receive Date: 20110218
  Receipt Date: 20110208
  Transmission Date: 20110831
  Serious: Yes (Other)
  Sender: FDA-Public Use
  Company Number: US-BAXTER-2011BH003354

PATIENT
  Sex: Female

DRUGS (1)
  1. DEXTROSE 5% AND SODIUM CHLORIDE 0.9% IN PLASTIC CONTAINER [Suspect]
     Indication: PRODUCT USED FOR UNKNOWN INDICATION
     Route: 065

REACTIONS (5)
  - SPINAL FRACTURE [None]
  - FALL [None]
  - TRANSIENT ISCHAEMIC ATTACK [None]
  - DEVICE LEAKAGE [None]
  - BACK PAIN [None]
